FAERS Safety Report 7222740-1 (Version None)
Quarter: 2011Q1

REPORT INFORMATION
  Report Type: 
  Country: None (occurrence: None)
  Receive Date: 20110106
  Receipt Date: 20110106
  Transmission Date: 20110831
  Serious: No
  Sender: FDA-Public Use
  Company Number: None

PATIENT
  Age: 58 Year
  Sex: Female
  Weight: 66.2252 kg

DRUGS (1)
  1. HUMIRA [Suspect]
     Dosage: 40MG 1 SHOT QOD IM
     Route: 030
     Dates: start: 20100107, end: 20100601

REACTIONS (3)
  - HEPATIC INFECTION [None]
  - INJECTION SITE DISCOLOURATION [None]
  - WEIGHT DECREASED [None]
